FAERS Safety Report 21699135 (Version 1)
Quarter: 2022Q4

REPORT INFORMATION
  Report Type: Spontaneous
  Country: CN (occurrence: CN)
  Receive Date: 20221208
  Receipt Date: 20221208
  Transmission Date: 20230112
  Serious: Yes (Hospitalization)
  Sender: FDA-Public Use
  Company Number: CN-002147023-NVSC2022CN282143

PATIENT
  Age: 57 Year
  Sex: Male
  Weight: 40 kg

DRUGS (1)
  1. VORICONAZOLE [Suspect]
     Active Substance: VORICONAZOLE
     Indication: Bronchopulmonary aspergillosis
     Dosage: 200 MG, BID (0.2G, Q12H)
     Route: 048
     Dates: start: 20221123, end: 20221127

REACTIONS (6)
  - Sleep disorder [Recovering/Resolving]
  - Conversion disorder [Recovering/Resolving]
  - Disorganised speech [Unknown]
  - Mania [Recovered/Resolved]
  - Persecutory delusion [Recovered/Resolved]
  - Hallucination, auditory [Recovered/Resolved]

NARRATIVE: CASE EVENT DATE: 20221123
